FAERS Safety Report 19278602 (Version 1)
Quarter: 2021Q2

REPORT INFORMATION
  Report Type: Spontaneous
  Country: US (occurrence: US)
  Receive Date: 20210520
  Receipt Date: 20210520
  Transmission Date: 20210717
  Serious: Yes (Hospitalization)
  Sender: FDA-Public Use
  Company Number: US-MYLANLABS-2021M1029696

PATIENT
  Sex: Male

DRUGS (41)
  1. ELETRIPTAN. [Suspect]
     Active Substance: ELETRIPTAN
     Indication: SUNCT SYNDROME
     Route: 065
  2. LIDOCAINE. [Suspect]
     Active Substance: LIDOCAINE
     Indication: SUNCT SYNDROME
  3. ONDANSETRON [Suspect]
     Active Substance: ONDANSETRON
     Indication: SUNCT SYNDROME
     Route: 065
  4. BOTOX [Suspect]
     Active Substance: ONABOTULINUMTOXINA
     Indication: SUNCT SYNDROME
     Route: 065
  5. MYOBLOC [Suspect]
     Active Substance: RIMABOTULINUMTOXINB
     Indication: SUNCT SYNDROME
     Route: 065
  6. LACOSAMIDE. [Suspect]
     Active Substance: LACOSAMIDE
     Indication: SUNCT SYNDROME
     Route: 065
  7. OXCARBAZEPINE. [Suspect]
     Active Substance: OXCARBAZEPINE
     Indication: SUNCT SYNDROME
     Route: 065
  8. DICLOFENAC [Suspect]
     Active Substance: DICLOFENAC
     Indication: SUNCT SYNDROME
     Route: 065
  9. GABAPENTIN. [Suspect]
     Active Substance: GABAPENTIN
     Indication: SUNCT SYNDROME
     Route: 065
  10. PROPRANOLOL [Suspect]
     Active Substance: PROPRANOLOL HYDROCHLORIDE
     Indication: SUNCT SYNDROME
     Route: 065
  11. VERAPAMIL [Suspect]
     Active Substance: VERAPAMIL HYDROCHLORIDE
     Indication: SUNCT SYNDROME
     Route: 065
  12. CLOMIPHENE                         /00061301/ [Suspect]
     Active Substance: CLOMIPHENE
     Indication: SUNCT SYNDROME
     Route: 065
  13. MELATONIN [Suspect]
     Active Substance: MELATONIN
     Indication: SUNCT SYNDROME
     Route: 065
  14. OXYCONTIN [Suspect]
     Active Substance: OXYCODONE HYDROCHLORIDE
     Indication: SUNCT SYNDROME
     Route: 065
  15. LAMOTRIGINE. [Suspect]
     Active Substance: LAMOTRIGINE
     Indication: SUNCT SYNDROME
     Route: 065
  16. PROCHLORPERAZINE. [Suspect]
     Active Substance: PROCHLORPERAZINE
     Indication: SUNCT SYNDROME
     Route: 065
  17. SUMATRIPTAN. [Suspect]
     Active Substance: SUMATRIPTAN
     Indication: SUNCT SYNDROME
     Route: 065
  18. TOPIRAMATE. [Suspect]
     Active Substance: TOPIRAMATE
     Indication: SUNCT SYNDROME
     Route: 065
  19. ZONISAMIDE. [Suspect]
     Active Substance: ZONISAMIDE
     Indication: SUNCT SYNDROME
     Route: 065
  20. VALPROIC ACID. [Suspect]
     Active Substance: VALPROIC ACID
     Indication: SUNCT SYNDROME
     Route: 065
  21. BACLOFEN. [Suspect]
     Active Substance: BACLOFEN
     Indication: SUNCT SYNDROME
     Route: 065
  22. INDOMETACIN [Suspect]
     Active Substance: INDOMETHACIN
     Indication: SUNCT SYNDROME
     Route: 065
  23. LORAZEPAM. [Suspect]
     Active Substance: LORAZEPAM
     Indication: SUNCT SYNDROME
     Route: 065
  24. PREGABALIN. [Suspect]
     Active Substance: PREGABALIN
     Indication: SUNCT SYNDROME
     Route: 065
  25. ZOLMITRIPTAN. [Suspect]
     Active Substance: ZOLMITRIPTAN
     Indication: SUNCT SYNDROME
     Route: 065
  26. AMITRIPTYLINE [Suspect]
     Active Substance: AMITRIPTYLINE
     Indication: SUNCT SYNDROME
     Route: 065
  27. CELECOXIB. [Suspect]
     Active Substance: CELECOXIB
     Indication: SUNCT SYNDROME
     Route: 065
  28. DEXTROPROPOXYPHENE HYDROCHLORIDE [Suspect]
     Active Substance: PROPOXYPHENE HYDROCHLORIDE
     Indication: SUNCT SYNDROME
     Route: 065
  29. PREDNISONE. [Suspect]
     Active Substance: PREDNISONE
     Indication: SUNCT SYNDROME
     Route: 065
  30. MAGNESIUM [Suspect]
     Active Substance: MAGNESIUM
     Indication: SUNCT SYNDROME
     Route: 065
  31. DIAZEPAM. [Suspect]
     Active Substance: DIAZEPAM
     Indication: SUNCT SYNDROME
     Route: 065
  32. ESCITALOPRAM [Suspect]
     Active Substance: ESCITALOPRAM OXALATE
     Indication: SUNCT SYNDROME
     Route: 065
  33. HYDROCHLOROTHIAZIDE. [Suspect]
     Active Substance: HYDROCHLOROTHIAZIDE
     Indication: SUNCT SYNDROME
     Route: 065
  34. LITHIUM. [Suspect]
     Active Substance: LITHIUM
     Indication: SUNCT SYNDROME
     Route: 065
  35. QUETIAPINE. [Suspect]
     Active Substance: QUETIAPINE
     Indication: SUNCT SYNDROME
     Route: 065
  36. CARBAMAZEPINE. [Suspect]
     Active Substance: CARBAMAZEPINE
     Indication: SUNCT SYNDROME
     Route: 065
  37. DIHYDROERGOTAMINE [Suspect]
     Active Substance: DIHYDROERGOTAMINE
     Indication: SUNCT SYNDROME
     Route: 065
  38. OXYMORPHONE [Suspect]
     Active Substance: OXYMORPHONE
     Indication: SUNCT SYNDROME
     Route: 065
  39. DEXAMETHASONE. [Suspect]
     Active Substance: DEXAMETHASONE
     Indication: SUNCT SYNDROME
     Route: 065
  40. MORPHINE [Suspect]
     Active Substance: MORPHINE
     Indication: SUNCT SYNDROME
     Route: 065
  41. KETAMINE [Suspect]
     Active Substance: KETAMINE
     Indication: SUNCT SYNDROME
     Route: 065

REACTIONS (2)
  - Drug ineffective for unapproved indication [Unknown]
  - Off label use [Unknown]
